FAERS Safety Report 6147874-4 (Version None)
Quarter: 2009Q2

REPORT INFORMATION
  Report Type: 
  Country: None (occurrence: None)
  Receive Date: 20090408
  Receipt Date: 20090330
  Transmission Date: 20091009
  Serious: Yes (Disabling)
  Sender: FDA-Public Use
  Company Number: DK-PFIZER INC-2009171632

PATIENT

DRUGS (4)
  1. LOPID [Suspect]
     Indication: HYPERTRIGLYCERIDAEMIA
     Dosage: 300 MG, 1X/DAY
     Route: 048
     Dates: start: 19980101, end: 20081203
  2. LOPID [Interacting]
     Dosage: 300 MG, ALTERNATE DAY
     Route: 048
     Dates: start: 20081204
  3. SIMVASTATIN [Interacting]
     Indication: HYPERTRIGLYCERIDAEMIA
     Dosage: 40 MG, 1X/DAY
     Route: 048
     Dates: start: 20080918, end: 20081203
  4. SIMVASTATIN [Interacting]
     Route: 048
     Dates: start: 20081204

REACTIONS (2)
  - DRUG INTERACTION [None]
  - PAIN IN EXTREMITY [None]
